FAERS Safety Report 10234665 (Version 1)
Quarter: 2014Q2

REPORT INFORMATION
  Report Type: Report from Study
  Country: AU (occurrence: AU)
  Receive Date: 20140613
  Receipt Date: 20140613
  Transmission Date: 20141212
  Serious: Yes (Hospitalization)
  Sender: FDA-Public Use
  Company Number: AU-BIOGENIDEC-2014BI054549

PATIENT
  Age: 71 Year
  Sex: Male

DRUGS (2)
  1. TECFIDERA [Suspect]
     Indication: MULTIPLE SCLEROSIS
     Dates: start: 20131104
  2. TECFIDERA [Suspect]
     Indication: MULTIPLE SCLEROSIS
     Route: 048
     Dates: start: 20140509

REACTIONS (2)
  - Cerebrovascular accident [Unknown]
  - Loss of consciousness [Unknown]
